FAERS Safety Report 7312059-2 (Version None)
Quarter: 2011Q1

REPORT INFORMATION
  Report Type: 
  Country: None (occurrence: None)
  Receive Date: 20110224
  Receipt Date: 20100730
  Transmission Date: 20110831
  Serious: No
  Sender: FDA-Public Use
  Company Number: US-BRISTOL-MYERS SQUIBB COMPANY-15208176

PATIENT
  Age: 64 Year
  Sex: Male

DRUGS (3)
  1. TAXOL [Suspect]
     Indication: HEAD AND NECK CANCER
     Dosage: RESTRTED ON 21JAN2010
     Route: 042
     Dates: start: 20090425, end: 20100801
  2. ERBITUX [Suspect]
     Indication: HEAD AND NECK CANCER
     Dosage: 20OCT:24DEC2009,RESTARTED ON 21JAN2010;400MG WEEKLY
     Route: 042
     Dates: start: 20090425, end: 20100801
  3. CARBOPLATIN [Suspect]
     Indication: HEAD AND NECK CANCER
     Dosage: RESTARTED ON 21JAN2010
     Route: 042
     Dates: start: 20090425, end: 20100801

REACTIONS (1)
  - BLOOD MAGNESIUM DECREASED [None]
